FAERS Safety Report 11383836 (Version 1)
Quarter: 2015Q3

REPORT INFORMATION
  Report Type: Spontaneous
  Country: US (occurrence: US)
  Receive Date: 20150814
  Receipt Date: 20150814
  Transmission Date: 20151125
  Serious: Yes (Other)
  Sender: FDA-Public Use
  Company Number: US-TAKEDA-2015TUS010706

PATIENT

DRUGS (2)
  1. ACTOS [Suspect]
     Active Substance: PIOGLITAZONE HYDROCHLORIDE
     Dosage: 30 MG, QD
     Route: 048
     Dates: start: 20080220
  2. ACTOS [Suspect]
     Active Substance: PIOGLITAZONE HYDROCHLORIDE
     Indication: TYPE 2 DIABETES MELLITUS
     Dosage: UNK
     Route: 048
     Dates: start: 2007, end: 2009

REACTIONS (9)
  - Confusional state [Unknown]
  - Loss of consciousness [Unknown]
  - Gait disturbance [Unknown]
  - Tremor [Unknown]
  - Fatigue [Unknown]
  - Dyspnoea [Unknown]
  - Disorientation [Unknown]
  - Asthenia [Unknown]
  - Hyperhidrosis [Unknown]
